FAERS Safety Report 24865974 (Version 1)
Quarter: 2025Q1

REPORT INFORMATION
  Report Type: Spontaneous
  Country: US (occurrence: US)
  Receive Date: 20250121
  Receipt Date: 20250121
  Transmission Date: 20250409
  Serious: Yes (Hospitalization, Other)
  Sender: GLAND PHARMA LTD
  Company Number: US-GLANDPHARMA-US-2025GLNLIT00075

PATIENT
  Age: 69 Year
  Sex: Male

DRUGS (3)
  1. DOXYCYCLINE [Suspect]
     Active Substance: DOXYCYCLINE
     Indication: Babesiosis
     Route: 065
  2. ATOVAQUONE [Concomitant]
     Active Substance: ATOVAQUONE
     Indication: Babesiosis
     Route: 065
  3. AZITHROMYCIN [Concomitant]
     Active Substance: AZITHROMYCIN
     Indication: Babesiosis
     Route: 065

REACTIONS (2)
  - Oesophageal injury [Unknown]
  - Gastrointestinal haemorrhage [Unknown]
